FAERS Safety Report 6732282-5 (Version None)
Quarter: 2010Q2

REPORT INFORMATION
  Report Type: 
  Country: None (occurrence: None)
  Receive Date: 20100519
  Receipt Date: 20100511
  Transmission Date: 20101027
  Serious: Yes (Life-Threatening)
  Sender: FDA-Public Use
  Company Number: B0653044A

PATIENT
  Sex: Male
  Weight: 90 kg

DRUGS (4)
  1. REQUIP [Suspect]
     Indication: PARKINSON'S DISEASE
     Dosage: 2MG PER DAY
     Route: 048
     Dates: start: 20091222, end: 20100213
  2. MADOPAR [Concomitant]
     Indication: PARKINSON'S DISEASE
     Dosage: 4TAB PER DAY
     Route: 065
     Dates: start: 20090217
  3. MADOPAR [Concomitant]
     Dosage: 2TAB PER DAY
     Route: 065
     Dates: start: 20090520
  4. SELEGILINE HYDROCHLORIDE [Concomitant]
     Indication: PARKINSON'S DISEASE
     Dosage: 2TAB PER DAY
     Route: 065
     Dates: start: 20090717

REACTIONS (3)
  - GRAND MAL CONVULSION [None]
  - LOSS OF CONSCIOUSNESS [None]
  - MALAISE [None]
